FAERS Safety Report 24004701 (Version 4)
Quarter: 2024Q4

REPORT INFORMATION
  Report Type: Spontaneous
  Country: US (occurrence: US)
  Receive Date: 20240624
  Receipt Date: 20241011
  Transmission Date: 20250114
  Serious: No
  Sender: PFIZER
  Company Number: US-PFIZER INC-202400191381

PATIENT
  Age: 8 Year
  Sex: Female

DRUGS (1)
  1. GENOTROPIN [Suspect]
     Active Substance: SOMATROPIN
     Dosage: 0.6 MG DAILY

REACTIONS (1)
  - Device malfunction [Unknown]
